FAERS Safety Report 20381246 (Version 1)
Quarter: 2022Q1

REPORT INFORMATION
  Report Type: Report from Study
  Country: US (occurrence: US)
  Receive Date: 20220127
  Receipt Date: 20220127
  Transmission Date: 20220423
  Serious: Yes (Hospitalization)
  Sender: FDA-Public Use
  Company Number: US-GILEAD-2022-0566411

PATIENT
  Sex: Male

DRUGS (33)
  1. AZTREONAM LYSINE [Suspect]
     Active Substance: AZTREONAM LYSINE
     Indication: Cystic fibrosis
     Route: 065
  2. TRIKAFTA [Suspect]
     Active Substance: ELEXACAFTOR\IVACAFTOR\TEZACAFTOR
     Indication: Product used for unknown indication
     Route: 065
  3. COLISTIMETHATE SODIUM [Concomitant]
     Active Substance: COLISTIMETHATE SODIUM
  4. CREON [Concomitant]
     Active Substance: PANCRELIPASE AMYLASE\PANCRELIPASE LIPASE\PANCRELIPASE PROTEASE
  5. PULMOZYME [Concomitant]
     Active Substance: DORNASE ALFA
  6. VITAMIN A [Concomitant]
     Active Substance: VITAMIN A
  7. VITAMIN D2 [Concomitant]
     Active Substance: ERGOCALCIFEROL
  8. FAMOTIDINE [Concomitant]
     Active Substance: FAMOTIDINE
  9. .ALPHA.-TOCOPHEROL [Concomitant]
     Active Substance: .ALPHA.-TOCOPHEROL
  10. TOBI PODHALER [Concomitant]
     Active Substance: TOBRAMYCIN
  11. LISINOPRIL [Concomitant]
     Active Substance: LISINOPRIL
  12. HUMALOG [Concomitant]
     Active Substance: INSULIN LISPRO
  13. ADDERALL [Concomitant]
     Active Substance: AMPHETAMINE ASPARTATE\AMPHETAMINE SULFATE\DEXTROAMPHETAMINE SACCHARATE\DEXTROAMPHETAMINE SULFATE
  14. ZOLPIDEM TARTRATE [Concomitant]
     Active Substance: ZOLPIDEM TARTRATE
  15. KETOCONAZOLE [Concomitant]
     Active Substance: KETOCONAZOLE
  16. FLUOCINONIDE [Concomitant]
     Active Substance: FLUOCINONIDE
  17. MINERALS\VITAMINS [Concomitant]
     Active Substance: MINERALS\VITAMINS
  18. POLYETHYLENE GLYCOLS [Concomitant]
     Active Substance: POLYETHYLENE GLYCOLS
  19. ALBUTEROL SULFATE [Concomitant]
     Active Substance: ALBUTEROL SULFATE
  20. SODIUM CHLORIDE [Concomitant]
     Active Substance: SODIUM CHLORIDE
  21. ALPRAZOLAM [Concomitant]
     Active Substance: ALPRAZOLAM
  22. PANTOPRAZOLE SODIUM [Concomitant]
     Active Substance: PANTOPRAZOLE SODIUM
  23. PROAIR HFA [Concomitant]
     Active Substance: ALBUTEROL SULFATE
  24. FLUTICASONE PROPIONATE [Concomitant]
     Active Substance: FLUTICASONE PROPIONATE
  25. AZITHROMYCIN [Concomitant]
     Active Substance: AZITHROMYCIN
  26. BACLOFEN [Concomitant]
     Active Substance: BACLOFEN
  27. CRANBERRY [Concomitant]
     Active Substance: CRANBERRY
  28. LACTINEX [LACTOBACILLUS ACIDOPHILUS] [Concomitant]
  29. LANTUS [Concomitant]
     Active Substance: INSULIN GLARGINE
  30. MELATONIN [Concomitant]
     Active Substance: MELATONIN
  31. ZOFRAN [Concomitant]
     Active Substance: ONDANSETRON HYDROCHLORIDE
  32. LAMOTRIGINE [Concomitant]
     Active Substance: LAMOTRIGINE
  33. VIIBRYD [Concomitant]
     Active Substance: VILAZODONE HYDROCHLORIDE

REACTIONS (4)
  - Withdrawal syndrome [Not Recovered/Not Resolved]
  - Forced expiratory volume decreased [Unknown]
  - Weight decreased [Unknown]
  - Suspected COVID-19 [Unknown]
